FAERS Safety Report 18290364 (Version 1)
Quarter: 2020Q3

REPORT INFORMATION
  Report Type: Spontaneous
  Country: IT (occurrence: IT)
  Receive Date: 20200921
  Receipt Date: 20200921
  Transmission Date: 20201103
  Serious: Yes (Hospitalization)
  Sender: FDA-Public Use
  Company Number: IT-ASTRAZENECA-2020SF18260

PATIENT
  Age: 49 Year
  Sex: Male
  Weight: 80 kg

DRUGS (2)
  1. QUETIAPINE. [Suspect]
     Active Substance: QUETIAPINE
     Indication: DRUG ABUSE
     Dosage: 6000.0MG ONCE/SINGLE ADMINISTRATION
     Route: 048
     Dates: start: 20180902, end: 20180902
  2. DEPAKIN [Concomitant]
     Active Substance: VALPROATE SODIUM
     Indication: MENTAL DISORDER
     Route: 048

REACTIONS (5)
  - Asthenia [Recovering/Resolving]
  - Drug abuse [Recovering/Resolving]
  - Weight decreased [Recovering/Resolving]
  - Muscle spasms [Recovering/Resolving]
  - Decreased appetite [Recovering/Resolving]

NARRATIVE: CASE EVENT DATE: 20180902
